FAERS Safety Report 9949957 (Version 1)
Quarter: 2014Q1

REPORT INFORMATION
  Report Type: Report from Study
  Country: DE (occurrence: DE)
  Receive Date: 20140304
  Receipt Date: 20140304
  Transmission Date: 20141002
  Serious: Yes (Life-Threatening, Hospitalization)
  Sender: FDA-Public Use
  Company Number: DE-SA-2014SA023413

PATIENT
  Age: 48 Year
  Sex: Male
  Weight: 112.1 kg

DRUGS (15)
  1. ANTI-THYMOCYTE GLOBULIN (RABBIT) [Suspect]
     Indication: IMMUNOSUPPRESSION
     Route: 042
     Dates: start: 20091023
  2. TACROLIMUS [Suspect]
     Indication: IMMUNOSUPPRESSION
     Route: 048
     Dates: end: 20100722
  3. TACROLIMUS [Suspect]
     Indication: IMMUNOSUPPRESSION
     Route: 048
     Dates: start: 20091023
  4. TACROLIMUS [Suspect]
     Indication: IMMUNOSUPPRESSION
     Route: 048
     Dates: start: 20100723
  5. TACROLIMUS [Suspect]
     Indication: IMMUNOSUPPRESSION
     Route: 048
     Dates: start: 20091023
  6. MYCOPHENOLATE MOFETIL [Suspect]
     Indication: IMMUNOSUPPRESSION
     Route: 048
     Dates: start: 20091023
  7. DECORTIN [Suspect]
     Indication: IMMUNOSUPPRESSION
     Route: 048
     Dates: start: 20091023
  8. CEFTRIAXONE [Concomitant]
     Dates: start: 20091003
  9. PANTOZOL [Concomitant]
     Dates: start: 20091023
  10. FOLSAN [Concomitant]
     Dates: start: 20091023
  11. LASIX [Concomitant]
     Dates: start: 20091025
  12. METOPROLOL [Concomitant]
  13. CALCIUM [Concomitant]
  14. CIPROFLOXACIN [Concomitant]
  15. SULFAMETHOXAZOLE/TRIMETHOPRIM [Concomitant]

REACTIONS (2)
  - Post procedural haemorrhage [Recovered/Resolved]
  - Blood creatinine increased [Recovering/Resolving]
